FAERS Safety Report 7014533 (Version 2)
Quarter: 2014Q3

REPORT INFORMATION
  Report Type: Spontaneous
  Country: IT (occurrence: None)
  Receive Date: 20090528
  Receipt Date: 20140822
  Transmission Date: 20150326
  Serious: Yes (Other)
  Sender: FDA-Public Use
  Company Number: 275100

PATIENT
  Age: 50 Year
  Sex: Female

DRUGS (1)
  1. PACLITAXEL. [Suspect]
     Active Substance: PACLITAXEL
     Indication: OVARIAN CANCER
     Dosage: 313 MG, INTRAVENOUS
     Route: 042
     Dates: start: 20090508, end: 20090508

REACTIONS (5)
  - Dyspnoea [None]
  - Syncope [None]
  - Chest discomfort [None]
  - Dizziness [None]
  - Flushing [None]

NARRATIVE: CASE EVENT DATE: 20090508
